FAERS Safety Report 6994640-3 (Version None)
Quarter: 2010Q3

REPORT INFORMATION
  Report Type: 
  Country: None (occurrence: None)
  Receive Date: 20100915
  Receipt Date: 20100915
  Transmission Date: 20110219
  Serious: No
  Sender: FDA-Public Use
  Company Number: None

PATIENT
  Age: 54 Year
  Sex: Male
  Weight: 88.4514 kg

DRUGS (1)
  1. OXYCONTIN [Suspect]
     Dosage: 4X EVERY 8 HOURS UNK
     Dates: start: 20100905, end: 20100910

REACTIONS (5)
  - FATIGUE [None]
  - MALAISE [None]
  - MOOD SWINGS [None]
  - NAUSEA [None]
  - URTICARIA [None]
